FAERS Safety Report 8425945-7 (Version None)
Quarter: 2012Q2

REPORT INFORMATION
  Report Type: 
  Country: None (occurrence: None)
  Receive Date: 20120611
  Receipt Date: 20120604
  Transmission Date: 20120825
  Serious: Yes (Hospitalization)
  Sender: FDA-Public Use
  Company Number: FR-SANOFI-AVENTIS-2012SA039446

PATIENT
  Age: 28 Year
  Sex: Female
  Weight: 53 kg

DRUGS (10)
  1. DOMPERIDONE [Suspect]
     Route: 048
     Dates: start: 20120419, end: 20120502
  2. CLINDAMYCIN [Concomitant]
     Dates: start: 20120427
  3. CEFTRIAXONE [Concomitant]
     Dates: start: 20120425, end: 20120425
  4. ACETAMINOPHEN [Suspect]
     Dosage: IN THE EVENING
     Route: 042
     Dates: start: 20120417, end: 20120417
  5. ACETAMINOPHEN [Suspect]
     Route: 042
     Dates: start: 20120418, end: 20120419
  6. ORBENIN CAP [Concomitant]
     Route: 042
     Dates: start: 20120420, end: 20120424
  7. LOVENOX [Suspect]
     Route: 058
     Dates: start: 20120417, end: 20120504
  8. MORPHINE SULFATE [Concomitant]
  9. CEFTRIAXONE [Concomitant]
     Dates: start: 20120418, end: 20120419
  10. OFLOXACIN [Suspect]
     Route: 048
     Dates: start: 20120422, end: 20120503

REACTIONS (1)
  - HEPATOCELLULAR INJURY [None]
